FAERS Safety Report 7987379-9 (Version None)
Quarter: 2011Q4

REPORT INFORMATION
  Report Type: 
  Country: None (occurrence: None)
  Receive Date: 20111216
  Receipt Date: 20111025
  Transmission Date: 20120403
  Serious: Yes (Other)
  Sender: FDA-Public Use
  Company Number: US-BRISTOL-MYERS SQUIBB COMPANY-16194292

PATIENT

DRUGS (2)
  1. GEODON [Concomitant]
  2. ABILIFY [Suspect]

REACTIONS (2)
  - DYSTONIA [None]
  - OCULOGYRIC CRISIS [None]
